FAERS Safety Report 22388899 (Version 1)
Quarter: 2023Q2

REPORT INFORMATION
  Report Type: Spontaneous
  Country: ES (occurrence: None)
  Receive Date: 20230531
  Receipt Date: 20230531
  Transmission Date: 20230721
  Serious: Yes (Other)
  Sender: FDA-Public Use
  Company Number: 2023A118585

PATIENT
  Age: 78 Year
  Sex: Female

DRUGS (1)
  1. DAPAGLIFLOZIN [Suspect]
     Active Substance: DAPAGLIFLOZIN
     Indication: Type 2 diabetes mellitus
     Dosage: 1C/DAY
     Route: 048
     Dates: start: 20230322, end: 202305

REACTIONS (3)
  - Asthenia [Unknown]
  - Hypotension [Unknown]
  - Vulvovaginitis [Unknown]

NARRATIVE: CASE EVENT DATE: 20230505
